FAERS Safety Report 5168043-0 (Version None)
Quarter: 2006Q4

REPORT INFORMATION
  Report Type: 
  Country: None (occurrence: None)
  Receive Date: 20061208
  Receipt Date: 20060424
  Transmission Date: 20070319
  Serious: No
  Sender: FDA-Public Use
  Company Number: US-GLAXOSMITHKLINE-A0602984A

PATIENT
  Age: 63 Year
  Sex: Female

DRUGS (6)
  1. AVANDARYL [Suspect]
     Dosage: 4MG TWICE PER DAY
     Route: 048
     Dates: start: 20060201
  2. AVANDAMET [Suspect]
     Dosage: 4MG TWICE PER DAY
     Route: 048
     Dates: start: 20040101, end: 20060101
  3. TENORETIC 100 [Concomitant]
  4. LIPITOR [Concomitant]
  5. POTASSIUM CHLORIDE [Concomitant]
  6. ACIPHEX [Concomitant]

REACTIONS (2)
  - ABDOMINAL DISTENSION [None]
  - BLOOD GLUCOSE INCREASED [None]
